FAERS Safety Report 4322297-9 (Version None)
Quarter: 2004Q1

REPORT INFORMATION
  Report Type: 
  Country: None (occurrence: None)
  Receive Date: 20040322
  Receipt Date: 20040322
  Transmission Date: 20041129
  Serious: Yes (Hospitalization)
  Sender: FDA-Public Use
  Company Number: None

PATIENT
  Age: 63 Year
  Sex: Female

DRUGS (8)
  1. D-MPH 5 MG CELGENE [Suspect]
     Dosage: 15 MG BID PO
     Route: 048
     Dates: start: 20030910
  2. ZOLOFT [Concomitant]
  3. DECADRON [Concomitant]
  4. DETROL [Concomitant]
  5. XANAX [Concomitant]
  6. CELEBREX [Concomitant]
  7. AMBIEN [Concomitant]
  8. BLINDED STUDY DRUG [Concomitant]

REACTIONS (5)
  - ABNORMAL BEHAVIOUR [None]
  - AGITATION [None]
  - HALLUCINATION, VISUAL [None]
  - INSOMNIA [None]
  - TREATMENT NONCOMPLIANCE [None]
